FAERS Safety Report 5189701-8 (Version None)
Quarter: 2006Q4

REPORT INFORMATION
  Report Type: 
  Country: None (occurrence: None)
  Receive Date: 20061215
  Receipt Date: 20061204
  Transmission Date: 20070319
  Serious: Yes (Life-Threatening)
  Sender: FDA-Public Use
  Company Number: T200601406

PATIENT
  Age: 22 Year
  Sex: Female
  Weight: 47.5 kg

DRUGS (2)
  1. OPTIRAY 300 [Suspect]
     Indication: COMPUTERISED TOMOGRAM
     Dosage: 120 ML, SINGLE, INTRAVENOUS
     Route: 042
     Dates: start: 20061120, end: 20061120
  2. OPTIRAY 300 [Suspect]
     Indication: COMPUTERISED TOMOGRAM ABDOMEN
     Dosage: 120 ML, SINGLE, INTRAVENOUS
     Route: 042
     Dates: start: 20061120, end: 20061120

REACTIONS (1)
  - ANAPHYLACTIC SHOCK [None]
